FAERS Safety Report 9984814 (Version 1)
Quarter: 2014Q1

REPORT INFORMATION
  Report Type: Report from Study
  Country: US (occurrence: US)
  Receive Date: 20140307
  Receipt Date: 20140307
  Transmission Date: 20141002
  Serious: No
  Sender: FDA-Public Use
  Company Number: US-ABBVIE-13P-163-1185059-00

PATIENT
  Age: 53 Year
  Sex: Female

DRUGS (5)
  1. HUMIRA [Suspect]
     Indication: RHEUMATOID ARTHRITIS
     Dates: start: 201309
  2. HIGH BLOOD PRESSURE MEDICATION [Concomitant]
     Indication: HYPERTENSION
  3. TRAMADOL [Concomitant]
     Indication: PRODUCT USED FOR UNKNOWN INDICATION
  4. LEFLUNOMIDE [Concomitant]
     Indication: RHEUMATOID ARTHRITIS
  5. FISH OIL [Concomitant]
     Indication: PRODUCT USED FOR UNKNOWN INDICATION

REACTIONS (2)
  - Dysphonia [Not Recovered/Not Resolved]
  - Nasopharyngitis [Not Recovered/Not Resolved]
